FAERS Safety Report 5898949-6 (Version None)
Quarter: 2008Q3

REPORT INFORMATION
  Report Type: 
  Country: None (occurrence: None)
  Receive Date: 20080925
  Receipt Date: 20080918
  Transmission Date: 20090109
  Serious: Yes (Other)
  Sender: FDA-Public Use
  Company Number: US-PFIZER INC-2008079352

PATIENT
  Sex: Female
  Weight: 50 kg

DRUGS (10)
  1. LIPITOR [Suspect]
     Indication: BLOOD CHOLESTEROL
     Dosage: TEXT:40MG
     Dates: start: 20080807, end: 20080916
  2. FISH OIL [Concomitant]
  3. PREMARIN [Concomitant]
  4. ZOLOFT [Concomitant]
  5. PREVACID [Concomitant]
  6. ALPRAZOLAM [Concomitant]
  7. AMBIEN [Concomitant]
  8. VICODIN [Concomitant]
  9. ANTIBIOTICS [Concomitant]
  10. VESICARE [Concomitant]

REACTIONS (3)
  - ARTHRALGIA [None]
  - HYPOKINESIA [None]
  - PAIN [None]
